FAERS Safety Report 5068313-0 (Version None)
Quarter: 2006Q3

REPORT INFORMATION
  Report Type: 
  Country: None (occurrence: None)
  Receive Date: 20060802
  Receipt Date: 20050729
  Transmission Date: 20061208
  Serious: No
  Sender: FDA-Public Use
  Company Number: US-BRISTOL-MYERS SQUIBB COMPANY-13056312

PATIENT
  Age: 75 Year
  Sex: Male
  Weight: 85 kg

DRUGS (5)
  1. COUMADIN [Suspect]
     Indication: ATRIAL FIBRILLATION
     Dosage: 5 MG DAILY FOR SIX DAYS; 2.5 MG DAILY FOR ONE DAY
  2. ATENOLOL [Concomitant]
  3. CARDIZEM [Concomitant]
  4. DIGOXIN [Concomitant]
  5. K-TAB [Concomitant]

REACTIONS (1)
  - ALOPECIA [None]
